FAERS Safety Report 17219181 (Version 3)
Quarter: 2020Q1

REPORT INFORMATION
  Report Type: Spontaneous
  Country: US (occurrence: US)
  Receive Date: 20191231
  Receipt Date: 20200221
  Transmission Date: 20200409
  Serious: No
  Sender: FDA-Public Use
  Company Number: US-ASTRAZENECA-2019SF81856

PATIENT
  Age: 25144 Day
  Sex: Male
  Weight: 116.6 kg

DRUGS (5)
  1. INSULIN [Concomitant]
     Active Substance: INSULIN NOS
     Dosage: INSULIN TYPE R
  2. INSULIN [Concomitant]
     Active Substance: INSULIN NOS
     Dosage: INSULIN TYPE N
  3. BYETTA [Suspect]
     Active Substance: EXENATIDE
     Indication: TYPE 2 DIABETES MELLITUS
     Route: 065
  4. BYDUREON BCISE [Suspect]
     Active Substance: EXENATIDE
     Indication: TYPE 2 DIABETES MELLITUS
     Route: 065
     Dates: start: 20191030
  5. BYDUREON BCISE [Suspect]
     Active Substance: EXENATIDE
     Indication: TYPE 2 DIABETES MELLITUS
     Route: 065
     Dates: start: 20190927

REACTIONS (8)
  - Stenosis [Unknown]
  - Hypertension [Unknown]
  - Device issue [Not Recovered/Not Resolved]
  - Circumstance or information capable of leading to medication error [Recovering/Resolving]
  - Therapeutic product effect delayed [Unknown]
  - Drug ineffective [Unknown]
  - Arthritis [Unknown]
  - Needle issue [Unknown]

NARRATIVE: CASE EVENT DATE: 20191030
